FAERS Safety Report 5570972-0 (Version None)
Quarter: 2007Q4

REPORT INFORMATION
  Report Type: 
  Country: None (occurrence: None)
  Receive Date: 20071221
  Receipt Date: 20071217
  Transmission Date: 20080405
  Serious: Yes (Hospitalization)
  Sender: FDA-Public Use
  Company Number: US-BRISTOL-MYERS SQUIBB COMPANY-14017719

PATIENT
  Age: 55 Year
  Sex: Female
  Weight: 136 kg

DRUGS (7)
  1. ABILIFY [Suspect]
     Indication: BIPOLAR DISORDER
     Dosage: 1 DOSAGE FORM  = 1 - 1.5 TABS.
     Dates: start: 20040501
  2. SEROQUEL [Suspect]
     Indication: BIPOLAR DISORDER
     Dates: start: 20040501
  3. MULTI-VITAMIN [Concomitant]
  4. HYALURONIC ACID [Concomitant]
  5. ASPIRIN [Concomitant]
  6. PREVACID [Concomitant]
  7. CHONDROITIN SULFATE + GLUCOSAMINE [Concomitant]

REACTIONS (6)
  - BIPOLAR DISORDER [None]
  - BODY TEMPERATURE FLUCTUATION [None]
  - NEUROLEPTIC MALIGNANT SYNDROME [None]
  - OEDEMA PERIPHERAL [None]
  - TREMOR [None]
  - URINARY TRACT INFECTION [None]
